FAERS Safety Report 11513868 (Version 2)
Quarter: 2015Q4

REPORT INFORMATION
  Report Type: Spontaneous
  Country: US (occurrence: US)
  Receive Date: 20150916
  Receipt Date: 20151021
  Transmission Date: 20160304
  Serious: Yes (Other)
  Sender: FDA-Public Use
  Company Number: US-PFIZER INC-2015303916

PATIENT
  Sex: Female

DRUGS (3)
  1. CECLOR [Suspect]
     Active Substance: CEFACLOR
     Dosage: UNK
     Dates: start: 2004
  2. CLINDAMYCIN HCL [Suspect]
     Active Substance: CLINDAMYCIN HYDROCHLORIDE
     Dosage: UNK
     Dates: start: 2004
  3. MEPERIDINE [Suspect]
     Active Substance: MEPERIDINE
     Dosage: UNK
     Dates: start: 2004

REACTIONS (2)
  - Drug hypersensitivity [Unknown]
  - Anaphylactic reaction [Unknown]

NARRATIVE: CASE EVENT DATE: 2004
